FAERS Safety Report 8436863 (Version 8)
Quarter: 2013Q1

REPORT INFORMATION
  Report Type: Spontaneous
  Country: US (occurrence: US)
  Receive Date: 20120302
  Receipt Date: 20130311
  Transmission Date: 20140127
  Serious: Yes (Hospitalization, Other)
  Sender: FDA-Public Use
  Company Number: US-PFIZER INC-2012053577

PATIENT
  Age: 44 Year
  Sex: Male
  Weight: 111 kg

DRUGS (11)
  1. TIKOSYN [Suspect]
     Indication: ATRIAL FIBRILLATION
     Dosage: 0.5 MG, 2X/DAY
     Route: 048
     Dates: start: 20120212
  2. TIKOSYN [Suspect]
     Indication: ARRHYTHMIA
  3. TIKOSYN [Suspect]
     Indication: CARDIAC DISORDER
  4. PRADAXA [Suspect]
     Indication: ANTICOAGULANT THERAPY
     Dosage: 150 MG, 2X/DAY
     Dates: start: 20120212
  5. SINGULAIR [Concomitant]
     Indication: HYPERSENSITIVITY
     Dosage: 10 MG, UNK
  6. SINGULAIR [Concomitant]
     Indication: ASTHMA
  7. PRO-AIR [Concomitant]
     Indication: DYSPNOEA
     Dosage: UNK
  8. PRO-AIR [Concomitant]
     Indication: ASTHMA
  9. CARDIZEM [Concomitant]
     Indication: ATRIAL FIBRILLATION
     Dosage: 180 MG, UNK
  10. CARDIZEM [Concomitant]
     Indication: ARRHYTHMIA
  11. ADVAIR [Concomitant]
     Dosage: UNK

REACTIONS (12)
  - Atrial fibrillation [Unknown]
  - Lung infection [Not Recovered/Not Resolved]
  - Palpitations [Unknown]
  - Fatigue [Recovering/Resolving]
  - Prostatitis [Unknown]
  - Medication error [Unknown]
  - Dizziness [Not Recovered/Not Resolved]
  - Skin exfoliation [Not Recovered/Not Resolved]
  - Fear [Not Recovered/Not Resolved]
  - Anxiety [Not Recovered/Not Resolved]
  - Dyspnoea [Unknown]
  - Nasopharyngitis [Not Recovered/Not Resolved]
